FAERS Safety Report 19551569 (Version 1)
Quarter: 2021Q3

REPORT INFORMATION
  Report Type: Spontaneous
  Country: US (occurrence: US)
  Receive Date: 20210715
  Receipt Date: 20210715
  Transmission Date: 20211014
  Serious: Yes (Hospitalization, Other)
  Sender: FDA-Public Use
  Company Number: US-AUROBINDO-AUR-APL-2021-029185

PATIENT
  Age: 67 Year
  Sex: Male
  Weight: 170 kg

DRUGS (4)
  1. IBUPROFEN. [Suspect]
     Active Substance: IBUPROFEN
     Indication: ARTHRALGIA
     Dosage: UNK UNK, ONCE A DAY
     Route: 065
  2. MOTRIN [Suspect]
     Active Substance: IBUPROFEN
     Indication: BACK PAIN
     Dosage: 600 MILLIGRAM, 3 TIMES A DAY (600?800 MG EVERY 8 HOURS X 3 YEARS )
     Route: 048
  3. IBUPROFEN. [Suspect]
     Active Substance: IBUPROFEN
     Dosage: THREE TO FOUR TIMES A DAY, INTENSIFICATION OF THERAPY
     Route: 065
  4. MOTRIN [Suspect]
     Active Substance: IBUPROFEN
     Indication: ARTHRALGIA
     Dosage: 800 MILLIGRAM, 3 TIMES A DAY (600?800 MG EVERY 8 HOURS X 3 YEARS )
     Route: 048

REACTIONS (5)
  - Tubulointerstitial nephritis [Recovering/Resolving]
  - Glomerulonephritis minimal lesion [Recovering/Resolving]
  - End stage renal disease [Recovering/Resolving]
  - Glomerulonephritis membranous [Recovering/Resolving]
  - Glomerulonephropathy [Recovering/Resolving]
